FAERS Safety Report 14714837 (Version 1)
Quarter: 2018Q2

REPORT INFORMATION
  Report Type: Report from Study
  Country: GB (occurrence: GB)
  Receive Date: 20180404
  Receipt Date: 20180404
  Transmission Date: 20180711
  Serious: Yes (Hospitalization)
  Sender: FDA-Public Use
  Company Number: GB-JNJFOC-20180341855

PATIENT
  Age: 55 Year
  Sex: Male

DRUGS (11)
  1. ENOXAPARIN SODIUM. [Concomitant]
     Active Substance: ENOXAPARIN SODIUM
     Route: 065
     Dates: start: 20171220, end: 20171225
  2. LIGHT LIQUID PARAFFIN W/WHITE SOFT PARAFFIN [Concomitant]
     Route: 061
     Dates: start: 20180123
  3. VENTOLIN [Concomitant]
     Active Substance: ALBUTEROL SULFATE
     Route: 065
     Dates: start: 20170306
  4. FEBUXOSTAT. [Concomitant]
     Active Substance: FEBUXOSTAT
     Route: 065
     Dates: start: 20171016
  5. PARACETAMOL [Concomitant]
     Active Substance: ACETAMINOPHEN
     Route: 065
     Dates: start: 20171220
  6. TRAMADOL. [Concomitant]
     Active Substance: TRAMADOL
     Route: 065
     Dates: start: 20161101
  7. HYDROMOL [Concomitant]
     Route: 061
     Dates: start: 20180123
  8. DOVOBET [Concomitant]
     Active Substance: BETAMETHASONE\CALCIPOTRIENE
     Route: 065
     Dates: start: 20170222
  9. BUMETANIDE. [Concomitant]
     Active Substance: BUMETANIDE
     Route: 065
     Dates: start: 20171213, end: 20171220
  10. STELARA [Suspect]
     Active Substance: USTEKINUMAB
     Indication: PSORIASIS
     Route: 058
     Dates: start: 20161101, end: 20170930
  11. COLCHICINE. [Concomitant]
     Active Substance: COLCHICINE
     Route: 065
     Dates: start: 20171016

REACTIONS (3)
  - Lower respiratory tract infection [Recovered/Resolved with Sequelae]
  - Pulmonary embolism [Recovered/Resolved]
  - Left ventricular failure [Recovered/Resolved with Sequelae]

NARRATIVE: CASE EVENT DATE: 20171212
